FAERS Safety Report 12797898 (Version 1)
Quarter: 2016Q3

REPORT INFORMATION
  Report Type: Spontaneous
  Country: US (occurrence: US)
  Receive Date: 20160929
  Receipt Date: 20160929
  Transmission Date: 20161109
  Serious: Yes (Other)
  Sender: FDA-Public Use
  Company Number: None

PATIENT
  Age: 5 Month
  Sex: Female
  Weight: 88.9 kg

DRUGS (2)
  1. GAMMAPLEX [Suspect]
     Active Substance: HUMAN IMMUNOGLOBULIN G
     Indication: POLYNEUROPATHY
     Dosage: ?          OTHER FREQUENCY:DAILY FOR 5 DAYS;?
     Route: 042
     Dates: start: 20160927, end: 20160928
  2. GAMMAPLEX [Suspect]
     Active Substance: HUMAN IMMUNOGLOBULIN G
     Indication: POLYNEUROPATHY
     Dosage: ?          OTHER FREQUENCY:DAILY X 5 DAYS;?
     Route: 042
     Dates: start: 20160927, end: 20160928

REACTIONS (10)
  - Pulmonary congestion [None]
  - Urinary incontinence [None]
  - Condition aggravated [None]
  - Rhinorrhoea [None]
  - Back pain [None]
  - Asthenia [None]
  - Feeling jittery [None]
  - Tremor [None]
  - Infusion related reaction [None]
  - Fall [None]

NARRATIVE: CASE EVENT DATE: 20160928
